FAERS Safety Report 15698781 (Version 1)
Quarter: 2018Q4

REPORT INFORMATION
  Report Type: Spontaneous
  Country: US (occurrence: US)
  Receive Date: 20181207
  Receipt Date: 20181207
  Transmission Date: 20190205
  Serious: Yes (Disabling)
  Sender: FDA-Public Use
  Company Number: None

PATIENT
  Sex: Female
  Weight: 99.79 kg

DRUGS (1)
  1. BREAST IMPLANT TEXTURED [Suspect]
     Active Substance: DEVICE

REACTIONS (6)
  - Procedural pain [None]
  - Emotional distress [None]
  - Complication associated with device [None]
  - Patient dissatisfaction with device [None]
  - Sjogren^s syndrome [None]
  - Pulmonary mass [None]
